FAERS Safety Report 7541479-6 (Version None)
Quarter: 2011Q2

REPORT INFORMATION
  Report Type: 
  Country: None (occurrence: None)
  Receive Date: 20110613
  Receipt Date: 20110607
  Transmission Date: 20111010
  Serious: No
  Sender: FDA-Public Use
  Company Number: US-BIOGENIDEC-2011BI021121

PATIENT
  Age: 51 Year
  Sex: Female

DRUGS (1)
  1. TYSABRI [Suspect]
     Indication: MULTIPLE SCLEROSIS
     Route: 042
     Dates: start: 20100831

REACTIONS (6)
  - MOTOR DYSFUNCTION [None]
  - BAND SENSATION [None]
  - PAIN [None]
  - GAIT DISTURBANCE [None]
  - MOBILITY DECREASED [None]
  - PAIN IN EXTREMITY [None]
